FAERS Safety Report 18161243 (Version 1)
Quarter: 2020Q3

REPORT INFORMATION
  Report Type: Spontaneous
  Country: US (occurrence: US)
  Receive Date: 20200817
  Receipt Date: 20200817
  Transmission Date: 20201103
  Serious: Yes (Hospitalization)
  Sender: FDA-Public Use
  Company Number: None

PATIENT
  Age: 48 Year
  Sex: Female

DRUGS (18)
  1. CELECOXIB. [Concomitant]
     Active Substance: CELECOXIB
  2. MORPHINE [Concomitant]
     Active Substance: MORPHINE
  3. GABAPENTIN. [Concomitant]
     Active Substance: GABAPENTIN
  4. HUMIRA [Suspect]
     Active Substance: ADALIMUMAB
     Indication: RHEUMATOID ARTHRITIS
     Dosage: ?          OTHER FREQUENCY:EVERY OTHER WEEK;?
     Route: 058
     Dates: start: 20200213
  5. FLUOCINONIDE. [Concomitant]
     Active Substance: FLUOCINONIDE
  6. OMEPRAZOLE. [Concomitant]
     Active Substance: OMEPRAZOLE
  7. CLOBETASOL [Concomitant]
     Active Substance: CLOBETASOL
  8. OTREXUP [Suspect]
     Active Substance: METHOTREXATE
     Indication: PRODUCT USED FOR UNKNOWN INDICATION
     Dosage: ?          OTHER FREQUENCY:ONCE WEEKLY;?
     Route: 058
     Dates: start: 20200306
  9. MELOXICAM. [Concomitant]
     Active Substance: MELOXICAM
  10. PREDNISONE. [Concomitant]
     Active Substance: PREDNISONE
  11. DICYCLOMINE [Concomitant]
     Active Substance: DICYCLOMINE HYDROCHLORIDE
  12. LOTEPREDNOL [Concomitant]
     Active Substance: LOTEPREDNOL
  13. ZOLPIDEM ER [Concomitant]
     Active Substance: ZOLPIDEM TARTRATE
  14. SIMVASTATIN. [Concomitant]
     Active Substance: SIMVASTATIN
  15. CYCLOBENZAPRINE. [Concomitant]
     Active Substance: CYCLOBENZAPRINE
  16. DICLOFENAC GEL [Concomitant]
     Active Substance: DICLOFENAC
  17. OXYCODONE/APAP [Concomitant]
     Active Substance: ACETAMINOPHEN\OXYCODONE HYDROCHLORIDE
  18. SOLIFENACIN [Concomitant]
     Active Substance: SOLIFENACIN

REACTIONS (4)
  - Nausea [None]
  - Dizziness [None]
  - Illness [None]
  - Arthralgia [None]
